FAERS Safety Report 8973176 (Version 1)
Quarter: 2012Q4

REPORT INFORMATION
  Report Type: 
  Country: FR (occurrence: FR)
  Receive Date: 20121218
  Receipt Date: 20121218
  Transmission Date: 20130627
  Serious: Yes (Hospitalization)
  Sender: FDA-Public Use
  Company Number: FR-VERTEX PHARMACEUTICALS INC.-2012-026340

PATIENT
  Age: 57 None
  Sex: Male
  Weight: 80 kg

DRUGS (4)
  1. VX-950 (TELAPREVIR) [Suspect]
     Indication: HEPATITIS C
     Dosage: 750 mg, tid
     Route: 048
     Dates: start: 20110325, end: 20110625
  2. COPEGUS [Suspect]
     Indication: HEPATITIS C
     Dosage: Dosage Form: Tablet
     Route: 048
     Dates: start: 20110325, end: 201203
  3. PEGASYS [Suspect]
     Indication: HEPATITIS C
     Dosage: Dosage Form: Injection
     Route: 058
     Dates: start: 20110325, end: 201203
  4. NEORECORMON [Concomitant]
     Indication: ANAEMIA

REACTIONS (4)
  - Dyspnoea [Recovered/Resolved]
  - Lymphopenia [Unknown]
  - Anaemia [Recovered/Resolved]
  - Drug eruption [Unknown]
